FAERS Safety Report 5984756-2 (Version None)
Quarter: 2008Q4

REPORT INFORMATION
  Report Type: 
  Country: None (occurrence: None)
  Receive Date: 20081208
  Receipt Date: 20081126
  Transmission Date: 20090506
  Serious: Yes (Other)
  Sender: FDA-Public Use
  Company Number: IT-B.I. PHARMACEUTICALS,INC./RIDGEFIELD-2008-DE-07268GD

PATIENT
  Sex: Female

DRUGS (3)
  1. NEVIRAPINE [Suspect]
     Indication: HIV INFECTION
     Dosage: 200MG
  2. LAMIVUDINE [Suspect]
     Indication: HIV INFECTION
     Dosage: 150MG
  3. STAVUDINE [Suspect]
     Indication: HIV INFECTION
     Dosage: 30MG

REACTIONS (3)
  - ANAEMIA [None]
  - FOCAL SEGMENTAL GLOMERULOSCLEROSIS [None]
  - PYREXIA [None]
